FAERS Safety Report 8965560 (Version 1)
Quarter: 2012Q4

REPORT INFORMATION
  Report Type: Spontaneous
  Country: DK (occurrence: None)
  Receive Date: 20121205
  Receipt Date: 20121205
  Transmission Date: 20130627
  Serious: Yes (Hospitalization)
  Sender: FDA-Public Use
  Company Number: 2012MA013699

PATIENT
  Age: 78 Year
  Sex: Male

DRUGS (9)
  1. NAPROXEN DELAYED-RELEASE [Suspect]
     Indication: SHOULDER PAIN
     Route: 048
     Dates: start: 20121106, end: 20121110
  2. IBUPROFEN [Suspect]
  3. CLOPIDOGREL [Concomitant]
  4. DILTIAZEM [Concomitant]
  5. TAMSULOSIN [Concomitant]
  6. PERINDOPRIL [Concomitant]
  7. MST CONTINUS [Concomitant]
  8. PLENDIL [Concomitant]
  9. SIMVASTATIN [Concomitant]

REACTIONS (7)
  - Gastrointestinal haemorrhage [None]
  - Dizziness [None]
  - Faeces discoloured [None]
  - Abdominal pain upper [None]
  - Nausea [None]
  - Cold sweat [None]
  - Dizziness [None]
